FAERS Safety Report 24217335 (Version 1)
Quarter: 2024Q3

REPORT INFORMATION
  Report Type: Spontaneous
  Country: US (occurrence: None)
  Receive Date: 20240815
  Receipt Date: 20240815
  Transmission Date: 20241016
  Serious: No
  Sender: Public
  Company Number: None

PATIENT
  Age: 76 Year
  Sex: Male
  Weight: 104 kg

DRUGS (1)
  1. STELARA [Suspect]
     Active Substance: USTEKINUMAB
     Indication: Crohn^s disease
     Dosage: OTHER FREQUENCY : ONCE EVERY 6 WEEKS;?
     Route: 058
     Dates: start: 20220914

REACTIONS (2)
  - Headache [None]
  - Post procedural complication [None]

NARRATIVE: CASE EVENT DATE: 20230901
